FAERS Safety Report 14262168 (Version 1)
Quarter: 2017Q4

REPORT INFORMATION
  Report Type: Spontaneous
  Country: US (occurrence: US)
  Receive Date: 20171208
  Receipt Date: 20171208
  Transmission Date: 20180321
  Serious: No
  Sender: FDA-Public Use
  Company Number: US-TEVA-814596ACC

PATIENT
  Age: 10 Year
  Sex: Female
  Weight: 29.48 kg

DRUGS (5)
  1. MUCUS D [Suspect]
     Active Substance: GUAIFENESIN\PSEUDOEPHEDRINE HYDROCHLORIDE
     Indication: INCREASED UPPER AIRWAY SECRETION
  2. MUCUS D [Suspect]
     Active Substance: GUAIFENESIN\PSEUDOEPHEDRINE HYDROCHLORIDE
     Indication: PARANASAL SINUS DISCOMFORT
  3. MUCUS D [Suspect]
     Active Substance: GUAIFENESIN\PSEUDOEPHEDRINE HYDROCHLORIDE
     Indication: COUGH
  4. MUCUS D [Suspect]
     Active Substance: GUAIFENESIN\PSEUDOEPHEDRINE HYDROCHLORIDE
     Indication: NASAL CONGESTION
     Dosage: 1 DOSAGE FORMS DAILY; ONE TABLET, SINGLE
     Route: 048
     Dates: start: 20170928, end: 20170928
  5. PROBIOTIC [Concomitant]
     Active Substance: PROBIOTICS NOS
     Route: 065

REACTIONS (2)
  - Condition aggravated [Recovered/Resolved]
  - Drug administered to patient of inappropriate age [Unknown]

NARRATIVE: CASE EVENT DATE: 20170928
